FAERS Safety Report 4449196-6 (Version None)
Quarter: 2004Q3

REPORT INFORMATION
  Report Type: 
  Country: None (occurrence: None)
  Receive Date: 20040910
  Receipt Date: 20040831
  Transmission Date: 20050211
  Serious: Yes (Other)
  Sender: FDA-Public Use
  Company Number: 2004061036

PATIENT
  Age: 52 Year
  Sex: Male

DRUGS (9)
  1. VIAGRA [Suspect]
     Indication: ERECTILE DYSFUNCTION
     Dosage: (50 MG), ORAL
     Route: 048
  2. ATORVASTATIN CALCIUM [Concomitant]
  3. ACETYLSALICYLIC ACID [Concomitant]
  4. GLIBENCLAMIDE [Concomitant]
  5. METFORMIN HCL [Concomitant]
  6. ATENOLOL [Concomitant]
  7. DOXEPIN HYDROCHLORIDE [Concomitant]
  8. DIURETICS [Concomitant]
  9. VALSARTAN [Concomitant]

REACTIONS (3)
  - BLOOD PRESSURE INCREASED [None]
  - HEART RATE INCREASED [None]
  - TACHYCARDIA [None]
